FAERS Safety Report 14006080 (Version 1)
Quarter: 2017Q3

REPORT INFORMATION
  Report Type: Spontaneous
  Country: US (occurrence: US)
  Receive Date: 20170924
  Receipt Date: 20170924
  Transmission Date: 20171128
  Serious: Yes (Other)
  Sender: FDA-Public Use
  Company Number: PHEH2017US030751

PATIENT
  Sex: Male

DRUGS (1)
  1. VOTRIENT [Suspect]
     Active Substance: PAZOPANIB HYDROCHLORIDE
     Indication: OESOPHAGEAL CARCINOMA
     Dosage: 800 MG, QD
     Route: 048
     Dates: start: 20170803, end: 20170918

REACTIONS (2)
  - Second primary malignancy [Unknown]
  - Renal cancer [Unknown]
